FAERS Safety Report 12911362 (Version 1)
Quarter: 2016Q4

REPORT INFORMATION
  Report Type: Spontaneous
  Country: US (occurrence: US)
  Receive Date: 20161102
  Receipt Date: 20161102
  Transmission Date: 20170207
  Serious: Yes (Life-Threatening)
  Sender: FDA-Public Use
  Company Number: None

PATIENT
  Age: 37 Year
  Sex: Male
  Weight: 100 kg

DRUGS (1)
  1. EXPAREL [Suspect]
     Active Substance: BUPIVACAINE
     Indication: INFILTRATION ANAESTHESIA
     Dosage: ?          OTHER FREQUENCY:ONCE;?
     Route: 014
     Dates: start: 20161031, end: 20161031

REACTIONS (4)
  - Bradycardia [None]
  - Nausea [None]
  - Bradyarrhythmia [None]
  - Mental status changes [None]

NARRATIVE: CASE EVENT DATE: 20161031
